FAERS Safety Report 5574690-4 (Version None)
Quarter: 2007Q4

REPORT INFORMATION
  Report Type: 
  Country: None (occurrence: None)
  Receive Date: 20071221
  Receipt Date: 20071221
  Transmission Date: 20080405
  Serious: Yes (Death, Hospitalization)
  Sender: FDA-Public Use
  Company Number: None

PATIENT
  Sex: Male
  Weight: 113.4 kg

DRUGS (7)
  1. TEMOZOLOMIDE [Suspect]
     Dosage: 3500 MG
  2. DECADRON [Concomitant]
  3. LEXAPRO [Concomitant]
  4. NEXIUM [Concomitant]
  5. VICODIN [Concomitant]
  6. WELLBUTRIN [Concomitant]
  7. XANAX [Concomitant]

REACTIONS (1)
  - PULMONARY EMBOLISM [None]
